FAERS Safety Report 7383055-4 (Version None)
Quarter: 2011Q1

REPORT INFORMATION
  Report Type: 
  Country: None (occurrence: None)
  Receive Date: 20110330
  Receipt Date: 20110322
  Transmission Date: 20110831
  Serious: Yes (Other)
  Sender: FDA-Public Use
  Company Number: US-PFIZER INC-2011038703

PATIENT
  Sex: Female

DRUGS (6)
  1. LEXAPRO [Suspect]
     Indication: FIBROMYALGIA
  2. LEXAPRO [Suspect]
     Indication: DEPRESSION
     Dosage: UNKNOWN
  3. PROZAC [Suspect]
     Indication: DEPRESSION
     Dosage: UNKNOWN
  4. CYMBALTA [Suspect]
     Indication: FIBROMYALGIA
  5. PROZAC [Suspect]
     Indication: FIBROMYALGIA
  6. CYMBALTA [Suspect]
     Indication: DEPRESSION
     Dosage: 1 DF, SINGLE

REACTIONS (2)
  - SUICIDAL IDEATION [None]
  - DEPRESSION [None]
